FAERS Safety Report 24884002 (Version 1)
Quarter: 2025Q1

REPORT INFORMATION
  Report Type: Spontaneous
  Country: CA (occurrence: CA)
  Receive Date: 20250124
  Receipt Date: 20250124
  Transmission Date: 20250409
  Serious: Yes (Other)
  Sender: JOHNSON AND JOHNSON
  Company Number: CA-JNTL CONSUMER HEALTH MIDDLE EAST FZ-LLC-20250104536

PATIENT
  Age: 54 Year
  Sex: Female

DRUGS (4)
  1. TYLENOL [Interacting]
     Active Substance: ACETAMINOPHEN
     Indication: Product used for unknown indication
     Route: 065
  2. MORPHINE SULFATE [Interacting]
     Active Substance: MORPHINE SULFATE
     Indication: Product used for unknown indication
     Route: 065
  3. TORADOL [Interacting]
     Active Substance: KETOROLAC TROMETHAMINE
     Indication: Product used for unknown indication
     Route: 065
  4. RINVOQ [Interacting]
     Active Substance: UPADACITINIB
     Indication: Ankylosing spondylitis

REACTIONS (5)
  - Gastrointestinal haemorrhage [Unknown]
  - Pain [Unknown]
  - Inflammation [Unknown]
  - Muscle spasms [Unknown]
  - Drug interaction [Unknown]
